FAERS Safety Report 4429849-6 (Version None)
Quarter: 2004Q3

REPORT INFORMATION
  Report Type: 
  Country: None (occurrence: None)
  Receive Date: 20040820
  Receipt Date: 20040810
  Transmission Date: 20050211
  Serious: Yes (Hospitalization)
  Sender: FDA-Public Use
  Company Number: US-JNJFOC-20040406381

PATIENT
  Age: 59 Year
  Sex: Female

DRUGS (4)
  1. DURAGESIC [Suspect]
     Route: 062
     Dates: start: 20031001
  2. TYLENOL W/ CODEINE [Concomitant]
     Indication: PAIN
     Route: 049
  3. FERROUS GLUCONATE [Concomitant]
     Route: 049
  4. NEXIUM [Concomitant]
     Indication: ULCER
     Route: 049

REACTIONS (4)
  - INTERVERTEBRAL DISC PROTRUSION [None]
  - OEDEMA PERIPHERAL [None]
  - SWELLING FACE [None]
  - WEIGHT INCREASED [None]
